FAERS Safety Report 10231660 (Version 1)
Quarter: 2014Q2

REPORT INFORMATION
  Report Type: Spontaneous
  Country: JP (occurrence: JP)
  Receive Date: 20140611
  Receipt Date: 20140611
  Transmission Date: 20141212
  Serious: Yes (Other)
  Sender: FDA-Public Use
  Company Number: PHHY2014JP070951

PATIENT
  Age: 16 Year
  Sex: Female

DRUGS (3)
  1. BETAMETHASONE [Suspect]
     Dosage: 200 MG, UNK
  2. BETAMETHASONE [Suspect]
     Dosage: 0.5 MG/DAY MAINTENANCE DOSE
  3. ANTIHISTAMINES [Concomitant]

REACTIONS (2)
  - Retinal vascular disorder [Unknown]
  - Disease recurrence [Unknown]
